FAERS Safety Report 4938869-4 (Version None)
Quarter: 2006Q1

REPORT INFORMATION
  Report Type: 
  Country: None (occurrence: None)
  Receive Date: 20060309
  Receipt Date: 20050930
  Transmission Date: 20060701
  Serious: Yes (Disabling, Other)
  Sender: FDA-Public Use
  Company Number: US-MERCK-0510USA00824

PATIENT
  Age: 53 Year
  Sex: Male

DRUGS (2)
  1. VIOXX [Suspect]
     Indication: PAIN
     Route: 048
     Dates: start: 20000208, end: 20041001
  2. ALTACE [Suspect]
     Route: 065

REACTIONS (5)
  - ARTHROPATHY [None]
  - CARDIAC DISORDER [None]
  - COUGH [None]
  - HEART INJURY [None]
  - MYOCARDIAL INFARCTION [None]
